FAERS Safety Report 8890008 (Version 1)
Quarter: 2012Q4

REPORT INFORMATION
  Report Type: Spontaneous
  Country: JP (occurrence: None)
  Receive Date: 20121031
  Receipt Date: 20121031
  Transmission Date: 20130627
  Serious: Yes (Hospitalization)
  Sender: FDA-Public Use
  Company Number: TPA2012A06963

PATIENT
  Age: 66 Year
  Sex: Female

DRUGS (1)
  1. FEBURIC (FEBUXOSTAT) [Suspect]
     Indication: HYPERURICAEMIA
     Dosage: 20 mg  (20 mg, 1 in 1 D)  Per Oral
     Route: 048
     Dates: start: 20120727, end: 20120804

REACTIONS (1)
  - Stevens-Johnson syndrome [None]
